FAERS Safety Report 20980157 (Version 1)
Quarter: 2022Q2

REPORT INFORMATION
  Report Type: Spontaneous
  Country: US (occurrence: US)
  Receive Date: 20220620
  Receipt Date: 20220620
  Transmission Date: 20220720
  Serious: No
  Sender: FDA-Public Use
  Company Number: US-009507513-2206USA004937

PATIENT
  Age: 72 Year
  Sex: Female

DRUGS (2)
  1. KEYTRUDA [Suspect]
     Active Substance: PEMBROLIZUMAB
     Dosage: UNK
  2. LENVATINIB MESYLATE [Suspect]
     Active Substance: LENVATINIB MESYLATE
     Indication: Endometrial cancer
     Dosage: 4 MILLIGRAM
     Route: 048
     Dates: start: 20220601

REACTIONS (7)
  - Stomatitis [Unknown]
  - Nausea [Unknown]
  - Cough [Unknown]
  - Taste disorder [Unknown]
  - Fatigue [Unknown]
  - Headache [Unknown]
  - Oral pain [Unknown]

NARRATIVE: CASE EVENT DATE: 20220601
